FAERS Safety Report 16115731 (Version 1)
Quarter: 2019Q1

REPORT INFORMATION
  Report Type: Spontaneous
  Country: US (occurrence: US)
  Receive Date: 20190326
  Receipt Date: 20190326
  Transmission Date: 20190418
  Serious: No
  Sender: FDA-Public Use
  Company Number: US-CELGENEUS-USA-20190307030

PATIENT
  Sex: Female

DRUGS (17)
  1. CHLORTHALID [Concomitant]
     Active Substance: CHLORTHALIDONE
     Indication: PRODUCT USED FOR UNKNOWN INDICATION
     Route: 048
     Dates: start: 20180131
  2. ZOLPIDEM [Concomitant]
     Active Substance: ZOLPIDEM\ZOLPIDEM TARTRATE
     Indication: PRODUCT USED FOR UNKNOWN INDICATION
     Route: 048
     Dates: start: 20180318
  3. CYCLOBENZAPRINE. [Concomitant]
     Active Substance: CYCLOBENZAPRINE
     Indication: PRODUCT USED FOR UNKNOWN INDICATION
     Route: 048
     Dates: start: 20181224
  4. CYANOCOBALAMIN. [Concomitant]
     Active Substance: CYANOCOBALAMIN
     Indication: PRODUCT USED FOR UNKNOWN INDICATION
     Route: 048
     Dates: start: 20180318
  5. ALLOPURINOL. [Concomitant]
     Active Substance: ALLOPURINOL
     Indication: PRODUCT USED FOR UNKNOWN INDICATION
     Route: 048
     Dates: start: 20190227
  6. BENAZEPRIL [Concomitant]
     Active Substance: BENAZEPRIL HYDROCHLORIDE
     Indication: PRODUCT USED FOR UNKNOWN INDICATION
     Route: 048
     Dates: start: 20180403
  7. VITAMIN D [Concomitant]
     Active Substance: CHOLECALCIFEROL
     Indication: PRODUCT USED FOR UNKNOWN INDICATION
     Route: 048
     Dates: start: 20190318
  8. OTEZLA [Suspect]
     Active Substance: APREMILAST
     Indication: PSORIASIS
     Dosage: 60 MILLIGRAM
     Route: 048
     Dates: start: 20180703
  9. ZOLPIDEM [Concomitant]
     Active Substance: ZOLPIDEM\ZOLPIDEM TARTRATE
     Route: 048
     Dates: start: 20181016
  10. VITAMIN D3 [Concomitant]
     Active Substance: CHOLECALCIFEROL
     Indication: PRODUCT USED FOR UNKNOWN INDICATION
     Route: 048
     Dates: start: 20180318
  11. GABAPENTIN. [Concomitant]
     Active Substance: GABAPENTIN
     Indication: PRODUCT USED FOR UNKNOWN INDICATION
     Route: 048
     Dates: start: 20180318
  12. ESTRADIOL. [Concomitant]
     Active Substance: ESTRADIOL
     Route: 048
     Dates: start: 20190307
  13. ASPIRIN. [Concomitant]
     Active Substance: ASPIRIN
     Indication: PRODUCT USED FOR UNKNOWN INDICATION
     Route: 048
     Dates: start: 20180703
  14. LYRICA [Concomitant]
     Active Substance: PREGABALIN
     Indication: PRODUCT USED FOR UNKNOWN INDICATION
     Route: 048
     Dates: start: 20180318
  15. AMLODIPINE [Concomitant]
     Active Substance: AMLODIPINE BESYLATE
     Indication: PRODUCT USED FOR UNKNOWN INDICATION
     Route: 048
     Dates: start: 20190221
  16. ESTRADIOL. [Concomitant]
     Active Substance: ESTRADIOL
     Indication: PRODUCT USED FOR UNKNOWN INDICATION
     Route: 048
     Dates: start: 20180323
  17. COLCRYS [Concomitant]
     Active Substance: COLCHICINE
     Indication: PRODUCT USED FOR UNKNOWN INDICATION
     Route: 048
     Dates: start: 20180131

REACTIONS (1)
  - Psoriasis [Unknown]
